FAERS Safety Report 7337669-8 (Version None)
Quarter: 2011Q1

REPORT INFORMATION
  Report Type: 
  Country: None (occurrence: None)
  Receive Date: 20110303
  Receipt Date: 20110303
  Transmission Date: 20110831
  Serious: No
  Sender: FDA-Public Use
  Company Number: None

PATIENT
  Sex: Male
  Weight: 97.5234 kg

DRUGS (1)
  1. NASONEX [Suspect]
     Indication: MULTIPLE ALLERGIES
     Dosage: 2 SPRAYS/NOSTREL DAILY, AS NEEDED NASAL
     Route: 045
     Dates: start: 20100101, end: 20110301

REACTIONS (2)
  - OCULAR HYPERTENSION [None]
  - CATARACT [None]
